FAERS Safety Report 5452990-6 (Version None)
Quarter: 2007Q3

REPORT INFORMATION
  Report Type: 
  Country: None (occurrence: None)
  Receive Date: 20070914
  Receipt Date: 20070902
  Transmission Date: 20080115
  Serious: Yes (Hospitalization, Other)
  Sender: FDA-Public Use
  Company Number: US-PFIZER INC-2007073931

PATIENT
  Sex: Female
  Weight: 117.9 kg

DRUGS (9)
  1. CHANTIX [Suspect]
     Indication: SMOKING CESSATION THERAPY
  2. NEURONTIN [Concomitant]
  3. TRILEPTAL [Concomitant]
  4. GLIPIZIDE [Concomitant]
  5. SEROQUEL [Concomitant]
  6. EFFEXOR [Concomitant]
  7. WARFARIN SODIUM [Concomitant]
  8. ATIVAN [Concomitant]
  9. VICODIN [Concomitant]

REACTIONS (2)
  - CHEST PAIN [None]
  - STAPHYLOCOCCAL INFECTION [None]
